FAERS Safety Report 6669431-3 (Version None)
Quarter: 2010Q2

REPORT INFORMATION
  Report Type: 
  Country: None (occurrence: None)
  Receive Date: 20100406
  Receipt Date: 20100131
  Transmission Date: 20101027
  Serious: Yes (Other)
  Sender: FDA-Public Use
  Company Number: PHHY2010IT12969

PATIENT
  Sex: Male

DRUGS (5)
  1. GLEEVEC [Suspect]
     Indication: ACUTE MYELOID LEUKAEMIA
     Dosage: 800 MG
     Route: 048
     Dates: start: 20051206, end: 20051228
  2. GLEEVEC [Suspect]
     Dosage: 800 MG
     Route: 048
     Dates: start: 20060117, end: 20061202
  3. GLEEVEC [Suspect]
     Dosage: 600 MG
     Route: 048
     Dates: start: 20060301, end: 20060319
  4. GLEEVEC [Suspect]
     Dosage: 400 MG
     Route: 048
     Dates: start: 20060329, end: 20070112
  5. DRUG USED IN DIABETES [Concomitant]

REACTIONS (7)
  - ASTHENIA [None]
  - DIARRHOEA [None]
  - DISTURBANCE IN ATTENTION [None]
  - IRRITABLE BOWEL SYNDROME [None]
  - MUSCLE SPASMS [None]
  - OEDEMA PERIPHERAL [None]
  - SOMNOLENCE [None]
